FAERS Safety Report 5069898-0 (Version None)
Quarter: 2006Q3

REPORT INFORMATION
  Report Type: 
  Country: None (occurrence: None)
  Receive Date: 20060731
  Receipt Date: 20060719
  Transmission Date: 20061208
  Serious: Yes (Death)
  Sender: FDA-Public Use
  Company Number: 2006090959

PATIENT
  Sex: Male

DRUGS (1)
  1. LYRICA [Suspect]
     Indication: DRUG USE FOR UNKNOWN INDICATION
     Dates: end: 20060101

REACTIONS (2)
  - DEPRESSED LEVEL OF CONSCIOUSNESS [None]
  - INCORRECT DOSE ADMINISTERED [None]
